FAERS Safety Report 8604221-3 (Version None)
Quarter: 2012Q3

REPORT INFORMATION
  Report Type: 
  Country: None (occurrence: None)
  Receive Date: 20120820
  Receipt Date: 20120816
  Transmission Date: 20120928
  Serious: No
  Sender: FDA-Public Use
  Company Number: US-PFIZER INC-2012201961

PATIENT
  Age: 34 Year
  Sex: Female
  Weight: 90.703 kg

DRUGS (3)
  1. PRISTIQ [Suspect]
     Indication: DEPRESSION
     Dosage: 50 MG, DAILY
     Dates: start: 20120501
  2. PRISTIQ [Suspect]
     Indication: ANXIETY
  3. IBUPROFEN [Suspect]
     Indication: MIGRAINE
     Dosage: 800 MG, DAILY

REACTIONS (2)
  - MIGRAINE [None]
  - DRUG EFFECT DECREASED [None]
